FAERS Safety Report 16460530 (Version 1)
Quarter: 2019Q2

REPORT INFORMATION
  Report Type: Spontaneous
  Country: US (occurrence: US)
  Receive Date: 20190620
  Receipt Date: 20190620
  Transmission Date: 20190711
  Serious: No
  Sender: FDA-Public Use
  Company Number: US-SA-2019SA159574

PATIENT
  Age: 51 Year
  Sex: Male

DRUGS (2)
  1. ALLEGRA D-12 HOUR [Suspect]
     Active Substance: FEXOFENADINE HYDROCHLORIDE\PSEUDOEPHEDRINE HYDROCHLORIDE
     Indication: NASAL OPERATION
     Dosage: TAKES TWO OR THREE TABLETS A DAY. CALLER STATED THAT HE HAS TO TAKE TWO AT
  2. ALLEGRA D-12 HOUR [Suspect]
     Active Substance: FEXOFENADINE HYDROCHLORIDE\PSEUDOEPHEDRINE HYDROCHLORIDE
     Indication: HYPERSENSITIVITY

REACTIONS (5)
  - Nasal operation [Unknown]
  - Inability to afford medication [Unknown]
  - Extra dose administered [Unknown]
  - Drug ineffective [Unknown]
  - Hypersensitivity [Unknown]
